FAERS Safety Report 6150362-2 (Version None)
Quarter: 2009Q2

REPORT INFORMATION
  Report Type: 
  Country: None (occurrence: None)
  Receive Date: 20090409
  Receipt Date: 20090331
  Transmission Date: 20091009
  Serious: Yes (Death)
  Sender: FDA-Public Use
  Company Number: US-GENENTECH-280334

PATIENT
  Sex: Male

DRUGS (5)
  1. NUTROPIN [Suspect]
     Indication: GROWTH RETARDATION
     Dosage: 3.3 MG, 3/WEEK
     Route: 058
     Dates: end: 20010712
  2. NUTROPIN [Suspect]
     Dosage: 3.3 MG, QHS
     Route: 058
  3. IMURAN [Concomitant]
     Indication: HEPATITIS
     Dosage: 75 MG, UNK
  4. URSODIOL [Concomitant]
     Indication: COLITIS ULCERATIVE
  5. INDERAL [Concomitant]
     Indication: COLITIS ULCERATIVE

REACTIONS (1)
  - T-CELL LYMPHOMA [None]
